FAERS Safety Report 4946386-0 (Version None)
Quarter: 2006Q1

REPORT INFORMATION
  Report Type: 
  Country: None (occurrence: None)
  Receive Date: 20060315
  Receipt Date: 20060315
  Transmission Date: 20060701
  Serious: No
  Sender: FDA-Public Use
  Company Number: None

PATIENT
  Age: 1 Year
  Sex: Female

DRUGS (4)
  1. LEVAQUIN [Suspect]
     Dates: start: 20050829, end: 20050907
  2. DILANTIN [Suspect]
     Dates: start: 20050821, end: 20050829
  3. PHENOBARBITAL TAB [Suspect]
     Dates: start: 20050821, end: 20050915
  4. CAM [Concomitant]

REACTIONS (4)
  - DRUG ERUPTION [None]
  - LIVER FUNCTION TEST ABNORMAL [None]
  - PYREXIA [None]
  - RASH ERYTHEMATOUS [None]
